FAERS Safety Report 20077716 (Version 1)
Quarter: 2021Q4

REPORT INFORMATION
  Report Type: Spontaneous
  Country: GB (occurrence: GB)
  Receive Date: 20211116
  Receipt Date: 20211116
  Transmission Date: 20220303
  Serious: Yes (Hospitalization, Other)
  Sender: FDA-Public Use
  Company Number: None

PATIENT
  Age: 66 Year
  Sex: Female

DRUGS (14)
  1. RISPERIDONE [Suspect]
     Active Substance: RISPERIDONE
     Indication: Product used for unknown indication
     Dosage: 4 MILLIGRAM
  2. AMITRIPTYLINE [Concomitant]
     Active Substance: AMITRIPTYLINE
     Dosage: 10 MILLIGRAM, QD  (AT NIGHT)
  3. CYCLIZINE [Concomitant]
     Active Substance: CYCLIZINE
     Dosage: 50 MILLIGRAM, PRN
  4. FERROUS FUMARATE [Concomitant]
     Active Substance: FERROUS FUMARATE
     Dosage: 210 MILLIGRAM, TID (WITH MEALS)
  5. NOVORAPID [Concomitant]
     Active Substance: INSULIN ASPART
     Dosage: 100UNITS/ML SOLUTION FOR INJECTION 3ML PRE-FILLED PEN 8 UNITS
  6. INSULIN GLARGINE [Concomitant]
     Active Substance: INSULIN GLARGINE
     Dosage: 100UNITS/ML 3ML PRE-FILLED SOLOSTAR PENS 60 UNITS TEA
  7. METFORMIN [Concomitant]
     Active Substance: METFORMIN HYDROCHLORIDE
     Dosage: 1000 MILLIGRAM, BID
  8. OMEPRAZOLE [Concomitant]
     Active Substance: OMEPRAZOLE
     Dosage: 20 MILLIGRAM, QD
  9. ACETAMINOPHEN [Concomitant]
     Active Substance: ACETAMINOPHEN
     Dosage: 500 MILLIGRAM, PRN
  10. PREGABALIN [Concomitant]
     Active Substance: PREGABALIN
     Dosage: 300 MILLIGRAM, BID
  11. QUININE [Concomitant]
     Active Substance: QUININE
     Dosage: 200 MILLIGRAM, QD (AT NIGHT)
  12. ROPINIROLE [Concomitant]
     Active Substance: ROPINIROLE
     Dosage: 1 MILLIGRAM
  13. SIMVASTATIN [Concomitant]
     Active Substance: SIMVASTATIN
     Dosage: 20 MILLIGRAM, QD (AT NIGHT)
  14. TRAMADOL [Concomitant]
     Active Substance: TRAMADOL
     Dosage: 100 MILLIGRAM, BID

REACTIONS (7)
  - Cerebrovascular accident [Unknown]
  - Dyspnoea [Unknown]
  - Dysarthria [Unknown]
  - Gait disturbance [Unknown]
  - Dizziness [Unknown]
  - Salivary hypersecretion [Unknown]
  - Product dispensing error [Unknown]

NARRATIVE: CASE EVENT DATE: 20210721
